FAERS Safety Report 12284151 (Version 2)
Quarter: 2016Q2

REPORT INFORMATION
  Report Type: Report from Study
  Country: US (occurrence: US)
  Receive Date: 20160419
  Receipt Date: 20160520
  Transmission Date: 20160815
  Serious: No
  Sender: FDA-Public Use
  Company Number: US-AMGEN-USASP2016046436

PATIENT
  Age: 14 Year
  Sex: Female

DRUGS (2)
  1. ENBREL [Suspect]
     Active Substance: ETANERCEPT
     Indication: JUVENILE PSORIATIC ARTHRITIS
     Dosage: 25 MG, WEEKLY
     Route: 065
     Dates: start: 2004
  2. ENBREL [Suspect]
     Active Substance: ETANERCEPT
     Dosage: 50 MG, WEEKLY
     Route: 065
     Dates: start: 20160406

REACTIONS (7)
  - Dizziness [Unknown]
  - Gait disturbance [Unknown]
  - Injection site pruritus [Not Recovered/Not Resolved]
  - Infection [Unknown]
  - Injection site swelling [Not Recovered/Not Resolved]
  - Nervousness [Not Recovered/Not Resolved]
  - Injection site erythema [Recovered/Resolved]

NARRATIVE: CASE EVENT DATE: 201604
